FAERS Safety Report 8567472-2 (Version None)
Quarter: 2012Q3

REPORT INFORMATION
  Report Type: 
  Country: None (occurrence: None)
  Receive Date: 20120803
  Receipt Date: 20110919
  Transmission Date: 20120928
  Serious: No
  Sender: FDA-Public Use
  Company Number: US-ABBOTT-11P-163-0855845-00

PATIENT
  Sex: Female
  Weight: 57.658 kg

DRUGS (2)
  1. COUMADIN [Concomitant]
     Indication: ILL-DEFINED DISORDER
     Dosage: VARIABLE DOSES
  2. NIASPAN [Suspect]
     Indication: BLOOD CHOLESTEROL

REACTIONS (2)
  - ERYTHEMA [None]
  - PRURITUS [None]
